FAERS Safety Report 14132996 (Version 1)
Quarter: 2017Q4

REPORT INFORMATION
  Report Type: Spontaneous
  Country: US (occurrence: US)
  Receive Date: 20171026
  Receipt Date: 20171026
  Transmission Date: 20180321
  Serious: Yes (Other)
  Sender: FDA-Public Use
  Company Number: None

PATIENT
  Weight: 73.35 kg

DRUGS (6)
  1. TYLENOL [Concomitant]
     Active Substance: ACETAMINOPHEN
  2. OMEPRAZOLE. [Concomitant]
     Active Substance: OMEPRAZOLE
  3. LETROZOLE. [Concomitant]
     Active Substance: LETROZOLE
  4. FASLODEX [Concomitant]
     Active Substance: FULVESTRANT
  5. CAPECITABINE. [Concomitant]
     Active Substance: CAPECITABINE
  6. IBRANCE [Suspect]
     Active Substance: PALBOCICLIB
     Indication: BREAST CANCER
     Route: 048
     Dates: start: 20170509, end: 20171026

REACTIONS (2)
  - Disease progression [None]
  - Therapy cessation [None]
